FAERS Safety Report 15893389 (Version 2)
Quarter: 2019Q2

REPORT INFORMATION
  Report Type: Spontaneous
  Country: US (occurrence: US)
  Receive Date: 20190130
  Receipt Date: 20190426
  Transmission Date: 20190711
  Serious: Yes (Other)
  Sender: FDA-Public Use
  Company Number: US-ROCHE-2251942

PATIENT
  Age: 64 Year
  Sex: Female
  Weight: 54.48 kg

DRUGS (1)
  1. AVASTIN [Suspect]
     Active Substance: BEVACIZUMAB
     Indication: MACULAR DEGENERATION
     Dosage: 100 MG/ 4 ML
     Route: 065
     Dates: start: 20181127, end: 20181127

REACTIONS (6)
  - Intentional product use issue [Unknown]
  - Product quality issue [Unknown]
  - Eye injury [Not Recovered/Not Resolved]
  - Vitreous floaters [Not Recovered/Not Resolved]
  - Product contamination chemical [Unknown]
  - Off label use [Unknown]

NARRATIVE: CASE EVENT DATE: 20181127
